FAERS Safety Report 4627920-7 (Version None)
Quarter: 2005Q2

REPORT INFORMATION
  Report Type: 
  Country: None (occurrence: None)
  Receive Date: 20050401
  Receipt Date: 20040520
  Transmission Date: 20051028
  Serious: Yes (Death, Hospitalization)
  Sender: FDA-Public Use
  Company Number: 8028

PATIENT
  Age: 52 Year
  Sex: Female

DRUGS (13)
  1. LEUCOVORIN CALCIUM [Suspect]
     Indication: COLORECTAL CANCER
     Dosage: 652 MG PER_CYCLE IV
     Route: 042
     Dates: start: 20031201, end: 20031202
  2. FLUOROURACIL [Suspect]
     Indication: COLORECTAL CANCER
     Dosage: 1304 MG PER_CYCLE IV
     Route: 042
     Dates: start: 20031201, end: 20031202
  3. FLUOROURACIL [Suspect]
     Indication: COLORECTAL CANCER
     Dosage: 1950 MG PER_CYCLE IV
     Route: 042
     Dates: start: 20031202, end: 20031203
  4. OXALIPLATIN [Suspect]
     Indication: COLORECTAL CANCER
     Dosage: 139 MG PER_CYCLE IV
     Route: 042
     Dates: start: 20031201, end: 20031202
  5. CETUXIMAB [Suspect]
     Indication: COLORECTAL CANCER
     Dosage: 407.5 MG WEEKLY IV
     Route: 042
     Dates: start: 20031201, end: 20031202
  6. WARFARIN SODIUM [Concomitant]
  7. LEVOFLOXACIN [Concomitant]
  8. FENTANYL [Concomitant]
  9. HYDROCODONE BITARTRATE [Concomitant]
  10. LORAZEPAM [Concomitant]
  11. DIPHENHYDRAMINE HCL [Concomitant]
  12. ACETAMINOPHEN [Concomitant]
  13. GRANISETRON [Concomitant]

REACTIONS (1)
  - SEPSIS [None]
